FAERS Safety Report 10542241 (Version 1)
Quarter: 2014Q4

REPORT INFORMATION
  Report Type: Spontaneous
  Country: US (occurrence: US)
  Receive Date: 20141024
  Receipt Date: 20141024
  Transmission Date: 20150529
  Serious: Yes (Death, Other)
  Sender: FDA-Public Use
  Company Number: DE-ASTRAZENECA-2014SE80208

PATIENT
  Age: 65 Year
  Sex: Male

DRUGS (5)
  1. METHOTREXATE [Interacting]
     Active Substance: METHOTREXATE
     Dosage: UNKNOWN DOSE
     Route: 065
  2. MELOXICAM. [Concomitant]
     Active Substance: MELOXICAM
  3. OMEPRAZOLE. [Suspect]
     Active Substance: OMEPRAZOLE
     Route: 048
  4. FUROSEMIDE. [Concomitant]
     Active Substance: FUROSEMIDE
  5. METHOTREXATE [Interacting]
     Active Substance: METHOTREXATE
     Dosage: UNKNOWN DOSE
     Route: 065

REACTIONS (6)
  - Renal failure [Fatal]
  - Labelled drug-drug interaction medication error [Unknown]
  - Skin erosion [Unknown]
  - Psoriasis [Unknown]
  - Bone marrow failure [Fatal]
  - Pancytopenia [Fatal]
